FAERS Safety Report 7706450-X (Version None)
Quarter: 2011Q3

REPORT INFORMATION
  Report Type: 
  Country: None (occurrence: None)
  Receive Date: 20110802
  Receipt Date: 20110107
  Transmission Date: 20111222
  Serious: Yes (Other)
  Sender: FDA-Public Use
  Company Number: 262714USA

PATIENT
  Sex: Male

DRUGS (1)
  1. TRAMADOL HYDROCHLORIDE [Suspect]
     Dosage: (50 MG), OAL
     Route: 048

REACTIONS (7)
  - FEELING ABNORMAL [None]
  - DRUG INEFFECTIVE [None]
  - EMOTIONAL DISORDER [None]
  - OVERDOSE [None]
  - INAPPROPRIATE AFFECT [None]
  - OBSESSIVE-COMPULSIVE DISORDER [None]
  - WITHDRAWAL SYNDROME [None]
